FAERS Safety Report 14222567 (Version 2)
Quarter: 2017Q4

REPORT INFORMATION
  Report Type: Spontaneous
  Country: JP (occurrence: JP)
  Receive Date: 20171124
  Receipt Date: 20171222
  Transmission Date: 20180321
  Serious: Yes (Death, Hospitalization, Other)
  Sender: FDA-Public Use
  Company Number: JP-AMGEN-JPNSP2017177003

PATIENT
  Age: 47 Year
  Sex: Female

DRUGS (1)
  1. PANITUMUMAB [Suspect]
     Active Substance: PANITUMUMAB
     Indication: NEOPLASM MALIGNANT
     Dosage: 6 MG/KG, Q2WEEKS
     Route: 041
     Dates: start: 20171023, end: 20171023

REACTIONS (3)
  - Jaundice [Recovered/Resolved]
  - Hepatic encephalopathy [Unknown]
  - Death [Fatal]

NARRATIVE: CASE EVENT DATE: 20171102
